FAERS Safety Report 9536363 (Version 1)
Quarter: 2013Q2

REPORT INFORMATION
  Report Type: Spontaneous
  Country: US (occurrence: None)
  Receive Date: 20130507
  Receipt Date: 20130507
  Transmission Date: 20140414
  Serious: Yes (Hospitalization, Other)
  Sender: FDA-Public Use
  Company Number: PHEH2012US023710

PATIENT
  Age: 61 Year
  Sex: Male

DRUGS (1)
  1. AFINITOR (RAD) [Suspect]
     Indication: PANCREATIC CARCINOMA
     Route: 048
     Dates: start: 2011

REACTIONS (1)
  - Pneumonia [None]
